FAERS Safety Report 20461648 (Version 1)
Quarter: 2022Q1

REPORT INFORMATION
  Report Type: Spontaneous
  Country: US (occurrence: None)
  Receive Date: 20220209
  Receipt Date: 20220209
  Transmission Date: 20220424
  Serious: No
  Sender: FDA-Public Use
  Company Number: None

PATIENT
  Age: 51 Year
  Sex: Female
  Weight: 52.62 kg

DRUGS (6)
  1. EPSOM SALTS NATURAL [Suspect]
     Active Substance: MAGNESIUM SULFATE, UNSPECIFIED
     Indication: Constipation
     Route: 048
  2. RIZTRIPTAN [Concomitant]
  3. ZOLMITRIPTAN [Concomitant]
     Active Substance: ZOLMITRIPTAN
  4. MINERALS\VITAMINS [Concomitant]
     Active Substance: MINERALS\VITAMINS
  5. VITAMIN C [Concomitant]
     Active Substance: ASCORBIC ACID
  6. VITAMIN D GUMMY [Concomitant]

REACTIONS (5)
  - Feeling hot [None]
  - Nausea [None]
  - Flushing [None]
  - Vomiting [None]
  - Migraine [None]

NARRATIVE: CASE EVENT DATE: 20220209
